FAERS Safety Report 19358076 (Version 1)
Quarter: 2021Q2

REPORT INFORMATION
  Report Type: Spontaneous
  Country: US (occurrence: US)
  Receive Date: 20210528
  Receipt Date: 20210528
  Transmission Date: 20210717
  Serious: Yes (Hospitalization)
  Sender: FDA-Public Use
  Company Number: None

PATIENT
  Age: 64 Year
  Sex: Male
  Weight: 103.7 kg

DRUGS (1)
  1. YESCARTA [Suspect]
     Active Substance: AXICABTAGENE CILOLEUCEL

REACTIONS (15)
  - Pyrexia [None]
  - Confusional state [None]
  - Encephalopathy [None]
  - Congenital rubella syndrome [None]
  - C-reactive protein increased [None]
  - Somnolence [None]
  - Memory impairment [None]
  - Asthenia [None]
  - Sensory loss [None]
  - Serum ferritin increased [None]
  - Disorientation [None]
  - Communication disorder [None]
  - Fatigue [None]
  - Hypervigilance [None]
  - Aphasia [None]

NARRATIVE: CASE EVENT DATE: 20210227
